FAERS Safety Report 9565067 (Version 2)
Quarter: 2013Q4

REPORT INFORMATION
  Report Type: Spontaneous
  Country: DK (occurrence: JP)
  Receive Date: 20130930
  Receipt Date: 20131004
  Transmission Date: 20140711
  Serious: Yes (Other)
  Sender: FDA-Public Use
  Company Number: JP-FRI-1000049260

PATIENT
  Age: 30 Year
  Sex: Male

DRUGS (3)
  1. LEXAPRO [Suspect]
     Indication: DEPRESSION
     Dosage: 210 MG
     Route: 048
  2. DEPAKENE [Concomitant]
     Dosage: OVERDOSE: 800 MG
     Route: 048
  3. SILECE [Concomitant]
     Dosage: OVERDOSE: 2 MG

REACTIONS (2)
  - Overdose [Unknown]
  - Physical assault [Unknown]
